FAERS Safety Report 12475769 (Version 2)
Quarter: 2016Q4

REPORT INFORMATION
  Report Type: Spontaneous
  Country: HU (occurrence: HU)
  Receive Date: 20160617
  Receipt Date: 20161017
  Transmission Date: 20170207
  Serious: Yes (Hospitalization)
  Sender: FDA-Public Use
  Company Number: HU-JNJFOC-20160613320

PATIENT
  Age: 67 Year
  Sex: Male

DRUGS (3)
  1. XARELTO [Suspect]
     Active Substance: RIVAROXABAN
     Indication: CEREBROVASCULAR ACCIDENT PROPHYLAXIS
     Route: 048
     Dates: start: 201604, end: 201606
  2. XARELTO [Suspect]
     Active Substance: RIVAROXABAN
     Indication: HEART VALVE REPLACEMENT
     Route: 048
     Dates: start: 201604, end: 201606
  3. XARELTO [Suspect]
     Active Substance: RIVAROXABAN
     Indication: ATRIAL FIBRILLATION
     Route: 048
     Dates: start: 201604, end: 201606

REACTIONS (2)
  - Acute myocardial infarction [Recovered/Resolved]
  - Coronary artery embolism [Recovered/Resolved]

NARRATIVE: CASE EVENT DATE: 20160429
